FAERS Safety Report 8472143-7 (Version None)
Quarter: 2012Q2

REPORT INFORMATION
  Report Type: 
  Country: None (occurrence: None)
  Receive Date: 20120323
  Receipt Date: 20110823
  Transmission Date: 20120825
  Serious: Yes (Hospitalization)
  Sender: FDA-Public Use
  Company Number: 163-21880-11082703

PATIENT
  Age: 62 Year
  Sex: Female
  Weight: 70.3075 kg

DRUGS (7)
  1. DECADRON [Concomitant]
  2. LENALIDOMIDE [Suspect]
     Indication: MULTIPLE MYELOMA
     Dosage: 15 MG, DAILY X 21 DAYS, PO
     Route: 048
     Dates: start: 20091202, end: 20110814
  3. KEFLEX (CEFALEXIN MONOHYDRATE)(UNKNOWN) [Concomitant]
  4. LISINOPRIL [Concomitant]
  5. PROTONIX (PANTOPRAZOLE SODIUM)(UNKNOWN) [Concomitant]
  6. TOPROL-XL [Concomitant]
  7. TYLENOL (PARACETAMOL)(UNKNOWN) [Concomitant]

REACTIONS (4)
  - CHEST PAIN [None]
  - PYREXIA [None]
  - PNEUMONIA [None]
  - MUSCULOSKELETAL CHEST PAIN [None]
